FAERS Safety Report 7507447-5 (Version None)
Quarter: 2011Q2

REPORT INFORMATION
  Report Type: 
  Country: None (occurrence: None)
  Receive Date: 20110526
  Receipt Date: 20110518
  Transmission Date: 20111010
  Serious: Yes (Other)
  Sender: FDA-Public Use
  Company Number: PHHY2011US42261

PATIENT
  Age: 76 Year
  Sex: Female

DRUGS (2)
  1. FLUDROCORTISONE ACETATE [Concomitant]
     Indication: ORTHOSTATIC HYPERTENSION
     Dosage: UNK UKN, UNK
  2. MIDODRINE HYDROCHLORIDE [Suspect]
     Indication: ORTHOSTATIC HYPOTENSION
     Dosage: UNK UKN, UNK

REACTIONS (1)
  - HALLUCINATION, VISUAL [None]
